FAERS Safety Report 8939078 (Version 1)
Quarter: 2012Q4

REPORT INFORMATION
  Report Type: 
  Country: US (occurrence: US)
  Receive Date: 20121203
  Receipt Date: 20121203
  Transmission Date: 20130627
  Serious: No
  Sender: FDA-Public Use
  Company Number: US-PFIZER INC-PRP-00036

PATIENT
  Age: 40 Year
  Sex: Male

DRUGS (5)
  1. INDERAL [Suspect]
     Indication: ANXIETY
     Dosage: 80 mg, 1x/day
     Route: 048
  2. INDERAL [Suspect]
     Indication: INSOMNIA
  3. LEXAPRO [Suspect]
     Indication: DEPRESSION
     Dosage: 10 mg, 1x/day,week 1
     Route: 048
     Dates: start: 2011
  4. LEXAPRO [Suspect]
     Indication: ANXIETY
     Dosage: 5 mg, UNK,week 2
     Dates: start: 2011
  5. LEXAPRO [Suspect]
     Dosage: 2.5 mg, UNK,week 3
     Dates: start: 2011

REACTIONS (10)
  - Fatigue [Not Recovered/Not Resolved]
  - Fatigue [Not Recovered/Not Resolved]
  - Malaise [Not Recovered/Not Resolved]
  - Dizziness [Not Recovered/Not Resolved]
  - Feeling abnormal [Unknown]
  - Depression [Not Recovered/Not Resolved]
  - Heart rate abnormal [Unknown]
  - Dizziness [Unknown]
  - Malaise [Unknown]
  - Feeling abnormal [Unknown]
